FAERS Safety Report 5962650-0 (Version None)
Quarter: 2008Q4

REPORT INFORMATION
  Report Type: 
  Country: None (occurrence: None)
  Receive Date: 20081121
  Receipt Date: 20081119
  Transmission Date: 20090506
  Serious: Yes (Death)
  Sender: FDA-Public Use
  Company Number: PHHY2008FR29002

PATIENT
  Sex: Female

DRUGS (1)
  1. LEPONEX [Suspect]

REACTIONS (1)
  - INTENTIONAL DRUG MISUSE [None]
